FAERS Safety Report 4892663-1 (Version None)
Quarter: 2006Q1

REPORT INFORMATION
  Report Type: 
  Country: None (occurrence: None)
  Receive Date: 20060126
  Receipt Date: 20060117
  Transmission Date: 20060701
  Serious: Yes (Hospitalization)
  Sender: FDA-Public Use
  Company Number: FR-BRISTOL-MYERS SQUIBB COMPANY-13250519

PATIENT
  Age: 73 Year
  Sex: Female

DRUGS (2)
  1. TAXOL [Suspect]
     Route: 042
  2. GEMZAR [Suspect]

REACTIONS (1)
  - CARDIAC FAILURE [None]
